FAERS Safety Report 6074701-6 (Version None)
Quarter: 2009Q1

REPORT INFORMATION
  Report Type: 
  Country: None (occurrence: None)
  Receive Date: 20090210
  Receipt Date: 20090210
  Transmission Date: 20090719
  Serious: Yes (Hospitalization)
  Sender: FDA-Public Use
  Company Number: None

PATIENT
  Sex: Male
  Weight: 96 kg

DRUGS (2)
  1. ERLOTINIB [Suspect]
     Indication: NON-SMALL CELL LUNG CANCER
     Dosage: 150MG, PO DAILY
     Route: 048
     Dates: start: 20081202, end: 20081229
  2. DASATINIB [Suspect]
     Indication: NON-SMALL CELL LUNG CANCER
     Dosage: 140MG PO DAILY
     Route: 048
     Dates: start: 20081210, end: 20081229

REACTIONS (4)
  - DEEP VEIN THROMBOSIS [None]
  - DISEASE RECURRENCE [None]
  - LUNG ADENOCARCINOMA METASTATIC [None]
  - MALIGNANT PLEURAL EFFUSION [None]
